FAERS Safety Report 15394907 (Version 1)
Quarter: 2018Q3

REPORT INFORMATION
  Report Type: Spontaneous
  Country: US (occurrence: PT)
  Receive Date: 20180918
  Receipt Date: 20180918
  Transmission Date: 20181010
  Serious: Yes (Hospitalization)
  Sender: FDA-Public Use
  Company Number: PT-BAUSCH-BL-2018-025272

PATIENT
  Age: 55 Year
  Sex: Male

DRUGS (4)
  1. METHOTREXATE. [Suspect]
     Active Substance: METHOTREXATE
     Indication: ARTHRALGIA
     Route: 048
  2. DICLOFENAC [Suspect]
     Active Substance: DICLOFENAC
     Indication: ARTHRALGIA
     Route: 065
  3. NAPROXEN. [Suspect]
     Active Substance: NAPROXEN
     Indication: ARTHRALGIA
     Route: 065
  4. ETANERCEPT [Suspect]
     Active Substance: ETANERCEPT
     Indication: ARTHRALGIA
     Route: 058
     Dates: end: 2012

REACTIONS (11)
  - Periorbital oedema [Unknown]
  - Proteinuria [Unknown]
  - Nephrotic syndrome [Unknown]
  - Hypoalbuminaemia [Unknown]
  - Hypercholesterolaemia [Unknown]
  - Oedema peripheral [Unknown]
  - Hypertriglyceridaemia [Unknown]
  - Secondary amyloidosis [Unknown]
  - Microalbuminuria [Unknown]
  - Condition aggravated [Unknown]
  - Hypoproteinaemia [Unknown]

NARRATIVE: CASE EVENT DATE: 201712
